FAERS Safety Report 11855256 (Version 9)
Quarter: 2016Q4

REPORT INFORMATION
  Report Type: Report from Study
  Country: JP (occurrence: JP)
  Receive Date: 20151221
  Receipt Date: 20161118
  Transmission Date: 20170206
  Serious: Yes (Death, Life-Threatening, Hospitalization)
  Sender: FDA-Public Use
  Company Number: PHJP2015JP020752

PATIENT
  Age: 1 Year
  Sex: Male
  Weight: 5.8 kg

DRUGS (38)
  1. ACZ885 [Suspect]
     Active Substance: CANAKINUMAB
     Indication: PROPHYLAXIS
     Dosage: 10 MG, UNK
     Route: 058
     Dates: start: 20150306
  2. ACZ885 [Suspect]
     Active Substance: CANAKINUMAB
     Dosage: 35 MG, UNK
     Route: 058
     Dates: start: 20151115
  3. ACZ885 [Suspect]
     Active Substance: CANAKINUMAB
     Dosage: 40 MG, UNK
     Route: 058
     Dates: start: 20151125
  4. ACZ885 [Suspect]
     Active Substance: CANAKINUMAB
     Dosage: 35 MG, UNK
     Route: 058
     Dates: start: 20151220
  5. ALEGYSAL [Concomitant]
     Indication: PRODUCT USED FOR UNKNOWN INDICATION
     Dosage: 8 MG, UNK
     Route: 048
     Dates: start: 20150127, end: 20151118
  6. THYRADIN [Concomitant]
     Active Substance: LEVOTHYROXINE
     Indication: PRODUCT USED FOR UNKNOWN INDICATION
     Dosage: 15 MG, UNK
     Route: 048
     Dates: end: 20151118
  7. CORETEC [Concomitant]
     Indication: PRODUCT USED FOR UNKNOWN INDICATION
     Dosage: 1.5 MG, UNK
     Route: 065
     Dates: start: 20151119, end: 20160118
  8. SOL-MELCORT [Concomitant]
     Active Substance: METHYLPREDNISOLONE SODIUM SUCCINATE
     Dosage: 90 MG, UNK
     Route: 065
     Dates: start: 20151120, end: 20151126
  9. BOSMIN [Concomitant]
     Active Substance: EPINEPHRINE
     Indication: PRODUCT USED FOR UNKNOWN INDICATION
     Dosage: 0.8 MG, UNK
     Route: 065
     Dates: start: 20160119, end: 20160123
  10. ACZ885 [Suspect]
     Active Substance: CANAKINUMAB
     Dosage: 11.5 MG, UNK
     Route: 058
     Dates: start: 20150505
  11. ACZ885 [Suspect]
     Active Substance: CANAKINUMAB
     Dosage: 30 MG, UNK
     Route: 058
     Dates: start: 20151215
  12. AZACTAM [Concomitant]
     Active Substance: AZTREONAM
     Indication: PROPHYLAXIS
     Dosage: 600 MG, UNK
     Route: 065
     Dates: start: 20160126
  13. ALDACTONE A [Concomitant]
     Active Substance: SPIRONOLACTONE
     Dosage: 5 MG, UNK
     Route: 048
     Dates: start: 20150727, end: 20151118
  14. HANP [Concomitant]
     Active Substance: CARPERITIDE
     Indication: PRODUCT USED FOR UNKNOWN INDICATION
     Dosage: 340 UG, UNK
     Route: 065
     Dates: start: 20151119, end: 20160118
  15. DOBUTAMINE [Concomitant]
     Active Substance: DOBUTAMINE\DOBUTAMINE HYDROCHLORIDE
     Indication: PRODUCT USED FOR UNKNOWN INDICATION
     Dosage: 4.3 MG, UNK
     Route: 065
     Dates: start: 20151119
  16. VANCOMYCIN [Concomitant]
     Active Substance: VANCOMYCIN
     Indication: PROPHYLAXIS
     Dosage: 100 MG, UNK
     Route: 065
     Dates: start: 20151120, end: 20151126
  17. ACZ885 [Suspect]
     Active Substance: CANAKINUMAB
     Dosage: 15 MG, UNK
     Route: 058
     Dates: start: 20151119
  18. ACZ885 [Suspect]
     Active Substance: CANAKINUMAB
     Dosage: 31 MG, UNK
     Route: 058
     Dates: start: 20151229
  19. FUROSEMIDE. [Concomitant]
     Active Substance: FUROSEMIDE
     Dosage: 5 MG, UNK
     Route: 048
     Dates: start: 20150727, end: 20151118
  20. SOTACOR [Concomitant]
     Active Substance: SOTALOL HYDROCHLORIDE
     Indication: PRODUCT USED FOR UNKNOWN INDICATION
     Dosage: 8 MG, UNK
     Route: 048
     Dates: end: 20151118
  21. SOL-MELCORT [Concomitant]
     Active Substance: METHYLPREDNISOLONE SODIUM SUCCINATE
     Indication: CRYOPYRIN ASSOCIATED PERIODIC SYNDROME
     Dosage: UNK
     Route: 065
     Dates: start: 20140929, end: 20141010
  22. ZOSYN [Concomitant]
     Active Substance: PIPERACILLIN SODIUM\TAZOBACTAM SODIUM
     Indication: PROPHYLAXIS
     Dosage: 330 MG, UNK
     Route: 065
     Dates: start: 20151120, end: 20151126
  23. CLINDAMYCIN. [Concomitant]
     Active Substance: CLINDAMYCIN
     Indication: PROPHYLAXIS
     Dosage: 120 MG, UNK
     Route: 065
     Dates: start: 20151230, end: 20160118
  24. ACZ885 [Suspect]
     Active Substance: CANAKINUMAB
     Indication: CHRONIC INFANTILE NEUROLOGICAL CUTANEOUS AND ARTICULAR SYNDROME
     Dosage: 4.5 MG, UNK
     Route: 058
     Dates: start: 20150127
  25. ACZ885 [Suspect]
     Active Substance: CANAKINUMAB
     Dosage: 50 MG, UNK
     Route: 058
     Dates: start: 20160108
  26. ACZ885 [Suspect]
     Active Substance: CANAKINUMAB
     Dosage: 50 MG, UNK
     Route: 058
     Dates: start: 20160115
  27. ADCIRCA [Concomitant]
     Active Substance: TADALAFIL
     Indication: PRODUCT USED FOR UNKNOWN INDICATION
     Dosage: 5 MG, UNK
     Route: 048
     Dates: end: 20151118
  28. TEICOPLANIN [Concomitant]
     Active Substance: TEICOPLANIN
     Indication: PROPHYLAXIS
     Dosage: 30 MG, UNK
     Route: 065
     Dates: start: 20151230
  29. DOPAMINE [Concomitant]
     Active Substance: DOPAMINE\DOPAMINE HYDROCHLORIDE
     Indication: PRODUCT USED FOR UNKNOWN INDICATION
     Dosage: 4.3 MG, UNK
     Route: 065
     Dates: start: 20160119
  30. ACZ885 [Suspect]
     Active Substance: CANAKINUMAB
     Dosage: 37.5 MG, UNK
     Route: 058
     Dates: start: 20151208
  31. ACZ885 [Suspect]
     Active Substance: CANAKINUMAB
     Dosage: 30 MG, UNK
     Route: 058
     Dates: start: 20151223
  32. LASIX [Concomitant]
     Active Substance: FUROSEMIDE
     Indication: PRODUCT USED FOR UNKNOWN INDICATION
     Dosage: 1 MG, UNK
     Route: 065
     Dates: end: 20150211
  33. LASIX [Concomitant]
     Active Substance: FUROSEMIDE
     Dosage: 24 MG, UNK
     Route: 065
     Dates: start: 20151119
  34. ACZ885 [Suspect]
     Active Substance: CANAKINUMAB
     Dosage: 14.4 MG, UNK
     Route: 058
     Dates: start: 20150611
  35. ACZ885 [Suspect]
     Active Substance: CANAKINUMAB
     Dosage: 50 MG, UNK
     Route: 058
     Dates: start: 20160120
  36. FUROSEMIDE. [Concomitant]
     Active Substance: FUROSEMIDE
     Indication: PRODUCT USED FOR UNKNOWN INDICATION
     Dosage: 6 MG, UNK
     Route: 048
     Dates: start: 20150127, end: 20150726
  37. ALDACTONE A [Concomitant]
     Active Substance: SPIRONOLACTONE
     Indication: PRODUCT USED FOR UNKNOWN INDICATION
     Dosage: 6 MG, UNK
     Route: 048
     Dates: start: 20150127, end: 20150726
  38. CEFTAZIDIME. [Concomitant]
     Active Substance: CEFTAZIDIME
     Indication: PROPHYLAXIS
     Dosage: 240 MG, UNK
     Route: 065
     Dates: start: 20160128

REACTIONS (12)
  - Subdural haematoma [Recovered/Resolved]
  - Weight increased [Unknown]
  - Bacterial sepsis [Recovered/Resolved]
  - Off label use [Unknown]
  - Sepsis [Fatal]
  - Cardiac ventricular thrombosis [Recovered/Resolved]
  - C-reactive protein increased [Unknown]
  - Drug administered to patient of inappropriate age [Unknown]
  - Drug ineffective [Unknown]
  - Circulatory collapse [Fatal]
  - Cardiac disorder [Fatal]
  - Incorrect dose administered [Not Recovered/Not Resolved]

NARRATIVE: CASE EVENT DATE: 20151119
